FAERS Safety Report 5843194-3 (Version None)
Quarter: 2008Q3

REPORT INFORMATION
  Report Type: 
  Country: None (occurrence: None)
  Receive Date: 20080813
  Receipt Date: 20080801
  Transmission Date: 20090109
  Serious: Yes (Hospitalization, Other)
  Sender: FDA-Public Use
  Company Number: PHHY2008JP15157

PATIENT
  Age: 18 Year
  Sex: Male

DRUGS (5)
  1. CYCLOSPORINE [Suspect]
     Indication: RENAL TRANSPLANT
     Dosage: UNK
     Dates: end: 20060909
  2. MYCOPHENOLATE MOFETIL [Suspect]
     Indication: RENAL TRANSPLANT
  3. METHYLPREDNISOLONE 16MG TAB [Concomitant]
     Indication: RENAL TRANSPLANT
     Dosage: 8 MG, UNK
  4. TACROLIMUS [Concomitant]
     Indication: RENAL TRANSPLANT
  5. SIMULECT [Concomitant]
     Indication: RENAL TRANSPLANT

REACTIONS (14)
  - BLOOD BETA-D-GLUCAN INCREASED [None]
  - BLOOD CREATININE INCREASED [None]
  - BONE MARROW FAILURE [None]
  - C-REACTIVE PROTEIN INCREASED [None]
  - HYPOXIA [None]
  - NEPHROPATHY [None]
  - NEPHROPATHY TOXIC [None]
  - PNEUMOCYSTIS JIROVECI PNEUMONIA [None]
  - PNEUMONIA BACTERIAL [None]
  - PNEUMONIA CYTOMEGALOVIRAL [None]
  - POLYOMAVIRUS-ASSOCIATED NEPHROPATHY [None]
  - PULMONARY ALVEOLAR HAEMORRHAGE [None]
  - PYREXIA [None]
  - RESPIRATORY TRACT HAEMORRHAGE [None]
